FAERS Safety Report 8810174 (Version 1)
Quarter: 2012Q4

REPORT INFORMATION
  Report Type: Report from Study
  Country: FR (occurrence: FR)
  Receive Date: 20120926
  Receipt Date: 20120926
  Transmission Date: 20130627
  Serious: Yes (Hospitalization)
  Sender: FDA-Public Use
  Company Number: FR-ROCHE-1128989

PATIENT
  Age: 61 Year
  Sex: Female

DRUGS (10)
  1. AVASTIN [Suspect]
     Indication: BREAST CANCER
     Route: 042
  2. ENDOXAN [Suspect]
     Indication: BREAST CANCER
     Route: 042
     Dates: start: 20111021, end: 20111202
  3. ENDOXAN [Suspect]
     Route: 042
     Dates: start: 20111223, end: 20111223
  4. FARMORUBICIN [Suspect]
     Indication: BREAST CANCER
     Route: 042
     Dates: start: 20111021, end: 20111202
  5. FARMORUBICIN [Suspect]
     Route: 042
     Dates: start: 20111223, end: 20111223
  6. FLUOROURACIL [Suspect]
     Indication: BREAST CANCER
     Route: 042
     Dates: start: 20111021, end: 20111202
  7. FLUOROURACIL [Suspect]
     Route: 042
     Dates: start: 20111223, end: 20111223
  8. TAXOTERE [Suspect]
     Indication: BREAST CANCER
     Route: 042
     Dates: start: 20120113, end: 20120113
  9. TAXOTERE [Suspect]
     Route: 042
     Dates: start: 20120213, end: 20120213
  10. HERCEPTIN [Concomitant]
     Route: 065
     Dates: start: 20120113

REACTIONS (1)
  - Febrile bone marrow aplasia [Recovered/Resolved]
